FAERS Safety Report 25057604 (Version 2)
Quarter: 2025Q1

REPORT INFORMATION
  Report Type: Spontaneous
  Country: US (occurrence: US)
  Receive Date: 20250310
  Receipt Date: 20250314
  Transmission Date: 20250409
  Serious: Yes (Other)
  Sender: ROCHE
  Company Number: US-ROCHE-10000226342

PATIENT
  Age: 46 Year
  Sex: Male

DRUGS (15)
  1. TRASTUZUMAB [Suspect]
     Active Substance: TRASTUZUMAB
     Indication: HER2 positive breast cancer
     Dosage: SUBSEQUENT DOSE DAY 1
     Route: 042
     Dates: start: 20200326, end: 20200601
  2. TRASTUZUMAB [Suspect]
     Active Substance: TRASTUZUMAB
     Dosage: DAY 1
     Route: 042
     Dates: start: 20200326, end: 20200601
  3. PERTUZUMAB [Suspect]
     Active Substance: PERTUZUMAB
     Indication: HER2 positive breast cancer
     Dosage: SUBSEQUENT DOSE DAY 1
     Route: 042
  4. PERTUZUMAB [Suspect]
     Active Substance: PERTUZUMAB
     Dosage: DAY 1
     Route: 042
     Dates: start: 20200326, end: 20200601
  5. CAPECITABINE [Suspect]
     Active Substance: CAPECITABINE
     Indication: HER2 positive breast cancer
     Dosage: 2 WEEKS ON AND 1 WEEK OFF
     Route: 048
     Dates: start: 20210410, end: 20220515
  6. ADO-TRASTUZUMAB EMTANSINE [Suspect]
     Active Substance: ADO-TRASTUZUMAB EMTANSINE
     Indication: HER2 positive breast cancer
     Dosage: DAY 1
     Route: 065
     Dates: start: 20230330
  7. PYROTINIB [Suspect]
     Active Substance: PYROTINIB
     Indication: HER2 positive breast cancer
     Route: 048
     Dates: start: 20210410, end: 20220515
  8. DOCETAXEL [Concomitant]
     Active Substance: DOCETAXEL
     Indication: HER2 positive breast cancer
     Dosage: DAY 1
     Route: 042
     Dates: start: 20200123, end: 20200305
  9. DOCETAXEL [Concomitant]
     Active Substance: DOCETAXEL
     Dosage: DAY 1
     Route: 042
     Dates: start: 20200326, end: 20200601
  10. EPIRUBICIN [Concomitant]
     Active Substance: EPIRUBICIN
     Indication: HER2 positive breast cancer
     Dosage: DAY 1
     Route: 042
     Dates: start: 20200123, end: 20200305
  11. CYCLOPHOSPHAMIDE [Concomitant]
     Active Substance: CYCLOPHOSPHAMIDE
     Indication: HER2 positive breast cancer
     Dosage: DAY1
     Route: 042
     Dates: start: 20200123, end: 20200305
  12. INVESTIGATIONAL PRODUCT [Concomitant]
     Active Substance: INVESTIGATIONAL PRODUCT
     Route: 042
     Dates: start: 202206, end: 202208
  13. VINORELBINE [Concomitant]
     Active Substance: VINORELBINE TARTRATE
     Route: 048
     Dates: start: 202206, end: 202208
  14. PREDNISOLONE [Concomitant]
     Active Substance: PREDNISOLONE
  15. ARX 788 [Concomitant]
     Dosage: DAY 1
     Route: 042

REACTIONS (5)
  - Interstitial lung disease [Unknown]
  - Metastasis [Unknown]
  - Diarrhoea [Unknown]
  - Stomatitis [Unknown]
  - Palmar-plantar erythrodysaesthesia syndrome [Unknown]
